FAERS Safety Report 8648598 (Version 2)
Quarter: 2012Q4

REPORT INFORMATION
  Report Type: 
  Country: LU (occurrence: LU)
  Receive Date: 20120703
  Receipt Date: 20121008
  Transmission Date: 20130627
  Serious: Yes (Death, Hospitalization, Other)
  Sender: FDA-Public Use
  Company Number: LU-PFIZER INC-2012154589

PATIENT
  Age: 68 Year
  Sex: Female
  Weight: 80 kg

DRUGS (3)
  1. LIPITOR [Suspect]
     Indication: CARDIOVASCULAR DISORDER
     Dosage: 80 mg, 1x/day
     Route: 048
     Dates: start: 2004
  2. SINEQUAN [Concomitant]
     Indication: DEPRESSION
     Dosage: UNK, 1x/day
     Route: 048
     Dates: start: 201108
  3. ASAFLOW [Concomitant]
     Dosage: 160 mg, 1x/day
     Route: 048
     Dates: start: 2004

REACTIONS (8)
  - Death [Fatal]
  - Rhabdomyolysis [Unknown]
  - Fall [Unknown]
  - Transient ischaemic attack [Unknown]
  - Gamma-glutamyltransferase increased [Unknown]
  - Transaminases increased [Unknown]
  - Blood lactate dehydrogenase increased [Unknown]
  - Low density lipoprotein increased [Unknown]
